FAERS Safety Report 21399767 (Version 1)
Quarter: 2022Q4

REPORT INFORMATION
  Report Type: Spontaneous
  Country: DE (occurrence: DE)
  Receive Date: 20221001
  Receipt Date: 20221001
  Transmission Date: 20230112
  Serious: Yes (Hospitalization)
  Sender: FDA-Public Use
  Company Number: DE-ADRED-07915-01

PATIENT
  Age: 66 Year
  Sex: Male
  Weight: 80 kg

DRUGS (13)
  1. CISPLATIN [Suspect]
     Active Substance: CISPLATIN
     Indication: Product used for unknown indication
     Dosage: 60 MG/SQM, ACCORDING TO THE SCHEME
  2. ETOPOSIDE [Suspect]
     Active Substance: ETOPOSIDE
     Indication: Product used for unknown indication
     Dosage: 120 MG/SQM, ACCORDING TO THE SCHEME
     Route: 065
  3. CANDESARTAN [Concomitant]
     Active Substance: CANDESARTAN
     Indication: Product used for unknown indication
     Dosage: 32 MILLIGRAM DAILY; 16 MG, 1-0-1-0
  4. NIFEDIPINE [Concomitant]
     Active Substance: NIFEDIPINE
     Indication: Product used for unknown indication
     Dosage: 10 MG, NEEDS, CAPSULES
  5. Ipratropiumbromide/Salbutamol [Concomitant]
     Indication: Product used for unknown indication
     Dosage: 4 DOSAGE FORMS DAILY; 0.5|2.5 MG, 1-1-1-1,SOLUTION
  6. AMLODIPINE [Concomitant]
     Active Substance: AMLODIPINE BESYLATE
     Indication: Product used for unknown indication
     Dosage: 10 MILLIGRAM DAILY; 5 MG, 1-0-1-0
  7. BISOPROLOL [Concomitant]
     Active Substance: BISOPROLOL
     Indication: Product used for unknown indication
     Dosage: 5 MILLIGRAM DAILY; 2.5 MG, 1-0-1-0
  8. METAMIZOLE [Concomitant]
     Active Substance: METAMIZOLE
     Indication: Product used for unknown indication
     Dosage: 750 MG, NEEDS, DROPS
  9. GLYCOPYRROLATE [Concomitant]
     Active Substance: GLYCOPYRROLATE
     Indication: Product used for unknown indication
     Dosage: 50 MICROGRAM DAILY; 50 UG, 1-0-0-0, INHALATION CAPSULES
  10. FORMOTEROL [Concomitant]
     Active Substance: FORMOTEROL
     Indication: Product used for unknown indication
     Dosage: 24 MICROGRAM DAILY; 12 UG, 1-0-1-0,INHALATION POWDER
  11. ASPIRIN [Concomitant]
     Active Substance: ASPIRIN
     Indication: Product used for unknown indication
     Dosage: 100 MILLIGRAM DAILY; 100 MG, 0-1-0-0 , ACETYLSALICYLSAURE
  12. PANTOPRAZOLE [Concomitant]
     Active Substance: PANTOPRAZOLE
     Indication: Product used for unknown indication
     Dosage: 40 MILLIGRAM DAILY; 40 MG, 1-0-0-0
  13. ENOXAPARIN [Concomitant]
     Active Substance: ENOXAPARIN
     Indication: Product used for unknown indication
     Dosage: 40 MILLIGRAM DAILY; 40 MG, 0-0-1-0,PRE-FILLED SYRINGES

REACTIONS (7)
  - Dysphagia [Unknown]
  - Cough [Unknown]
  - Dizziness [Unknown]
  - Fatigue [Unknown]
  - Acute kidney injury [Unknown]
  - Dehydration [Unknown]
  - General physical health deterioration [Unknown]
